FAERS Safety Report 9906287 (Version 2)
Quarter: 2014Q1

REPORT INFORMATION
  Report Type: Spontaneous
  Country: US (occurrence: US)
  Receive Date: 20140218
  Receipt Date: 20140218
  Transmission Date: 20141002
  Serious: No
  Sender: FDA-Public Use
  Company Number: US-GILEAD-2012-0050657

PATIENT
  Sex: Male
  Weight: 124.26 kg

DRUGS (14)
  1. LETAIRIS [Suspect]
     Indication: PULMONARY HYPERTENSION
     Dosage: 5 MG, UNK
     Route: 048
     Dates: end: 20120203
  2. LETAIRIS [Suspect]
     Dosage: UNK
  3. ALBUTEROL SULFATE [Concomitant]
  4. ASPIRIN [Concomitant]
  5. ATACAND [Concomitant]
  6. CLONIDINE [Concomitant]
  7. DOXAZOSIN [Concomitant]
  8. FUROSEMIDE [Concomitant]
  9. ISOSORBIDE MONONITRATE [Concomitant]
  10. MINOXIDIL [Concomitant]
  11. NORVASC [Concomitant]
  12. NOVOLIN N [Concomitant]
  13. NOVOLOG [Concomitant]
  14. TOPROL XL [Concomitant]

REACTIONS (5)
  - Fluid overload [Unknown]
  - Abdominal pain upper [Unknown]
  - Swelling [Unknown]
  - Weight increased [Recovered/Resolved]
  - Fluid retention [Recovered/Resolved]
